FAERS Safety Report 7306009-2 (Version None)
Quarter: 2011Q1

REPORT INFORMATION
  Report Type: 
  Country: None (occurrence: None)
  Receive Date: 20110209
  Receipt Date: 20110124
  Transmission Date: 20110831
  Serious: Yes (Other)
  Sender: FDA-Public Use
  Company Number: 2011MA000612

PATIENT
  Age: 6 Month
  Sex: Male

DRUGS (4)
  1. ALBUTEROL [Concomitant]
  2. LANSOPRAZOL [Concomitant]
  3. FLUTICASONE [Concomitant]
  4. IPRATROPIUM BROMIDE [Suspect]
     Indication: PNEUMONIA
     Dosage: INH
     Route: 055

REACTIONS (4)
  - MYDRIASIS [None]
  - TRACHEOMALACIA [None]
  - GASTROOESOPHAGEAL REFLUX DISEASE [None]
  - UNRESPONSIVE TO STIMULI [None]
